FAERS Safety Report 7137216-X (Version None)
Quarter: 2010Q4

REPORT INFORMATION
  Report Type: 
  Country: None (occurrence: None)
  Receive Date: 20101206
  Receipt Date: 20071207
  Transmission Date: 20110411
  Serious: Yes (Death, Hospitalization)
  Sender: FDA-Public Use
  Company Number: US-ACTELION-A-US2006-16340

PATIENT

DRUGS (12)
  1. ILOPROST INHALATION SOLUTION 5UG US [Suspect]
     Indication: PULMONARY HYPERTENSION
     Dosage: 5 UG, 6 X DAY
     Route: 055
     Dates: start: 20060810
  2. PREVACID [Concomitant]
  3. PRILOSEC [Concomitant]
  4. QUININE SULFATE [Concomitant]
  5. NPH INSULIN [Concomitant]
  6. METOLAZONE [Concomitant]
  7. ALDACTONE [Concomitant]
  8. AVANDIA [Concomitant]
  9. LASIX [Concomitant]
  10. PERSANTINE [Concomitant]
  11. POTASSIUM CHLORIDE [Concomitant]
  12. AMBRISENTAN [Concomitant]

REACTIONS (3)
  - DEATH [None]
  - PNEUMONIA [None]
  - RIGHT VENTRICULAR FAILURE [None]
